FAERS Safety Report 6386158-6 (Version None)
Quarter: 2009Q4

REPORT INFORMATION
  Report Type: 
  Country: None (occurrence: None)
  Receive Date: 20091002
  Receipt Date: 20081230
  Transmission Date: 20100525
  Serious: No
  Sender: FDA-Public Use
  Company Number: US-ASTRAZENECA-2008UW28866

PATIENT
  Age: 69 Year
  Sex: Female

DRUGS (2)
  1. ARIMIDEX [Suspect]
  2. ATACAND [Concomitant]

REACTIONS (1)
  - JOINT SWELLING [None]
